FAERS Safety Report 21713535 (Version 1)
Quarter: 2022Q4

REPORT INFORMATION
  Report Type: Spontaneous
  Country: NO (occurrence: NO)
  Receive Date: 20221212
  Receipt Date: 20221212
  Transmission Date: 20230112
  Serious: Yes (Other)
  Sender: FDA-Public Use
  Company Number: None

PATIENT
  Age: 75 Year
  Sex: Male
  Weight: 63 kg

DRUGS (6)
  1. DALFAMPRIDINE [Suspect]
     Active Substance: DALFAMPRIDINE
     Indication: Disability
     Dosage: STRENGTH- 10 MG
     Dates: start: 2022
  2. ACETAMINOPHEN [Concomitant]
     Active Substance: ACETAMINOPHEN
     Indication: Pain
     Dosage: STRENGTH- 1 G
  3. SIMVASTATIN [Concomitant]
     Active Substance: SIMVASTATIN
     Indication: Hypercholesterolaemia
     Dosage: STRENGTH- 40 MG
  4. BUPRENORPHINE [Concomitant]
     Active Substance: BUPRENORPHINE
     Indication: Pain
     Dosage: STRENGTH- 20 MCG, 1 PLASTER PER WEEK
  5. ASPIRIN [Concomitant]
     Active Substance: ASPIRIN
     Indication: Hypertension
     Dosage: STRENGTH- 75 MG
  6. LYRICA [Concomitant]
     Active Substance: PREGABALIN
     Indication: Pain
     Dosage: STRENGTH- 300 MG

REACTIONS (4)
  - Loss of personal independence in daily activities [Unknown]
  - Product substitution issue [Unknown]
  - Impaired quality of life [Unknown]
  - Mobility decreased [Not Recovered/Not Resolved]

NARRATIVE: CASE EVENT DATE: 20220101
